FAERS Safety Report 23379961 (Version 3)
Quarter: 2024Q2

REPORT INFORMATION
  Report Type: Spontaneous
  Country: JP (occurrence: JP)
  Receive Date: 20240109
  Receipt Date: 20240509
  Transmission Date: 20240715
  Serious: Yes (Hospitalization, Other)
  Sender: FDA-Public Use
  Company Number: None

PATIENT

DRUGS (8)
  1. NUCALA [Suspect]
     Active Substance: MEPOLIZUMAB
     Indication: Asthma
     Dosage: 100 MG, Q4W
     Route: 058
     Dates: start: 20221005
  2. RINVOQ [Suspect]
     Active Substance: UPADACITINIB
     Indication: Rheumatoid arthritis
     Dosage: 15 MG, QD
     Route: 048
     Dates: start: 20230705
  3. PREDNISOLONE [Suspect]
     Active Substance: PREDNISOLONE
     Indication: Rheumatoid arthritis
     Dosage: 6 MG, QD
     Route: 048
     Dates: start: 20230828
  4. NEXIUM [Concomitant]
     Active Substance: ESOMEPRAZOLE MAGNESIUM
     Indication: Gastrooesophageal reflux disease
     Dosage: 20 MG, QD
     Route: 048
     Dates: start: 20170630
  5. ENTRESTO [Concomitant]
     Active Substance: SACUBITRIL\VALSARTAN
     Dosage: 200 MG, QD
     Route: 048
     Dates: start: 20220608
  6. IPRAGLIFLOZIN L-PROLINE\SITAGLIPTIN PHOSPHATE [Concomitant]
     Active Substance: IPRAGLIFLOZIN L-PROLINE\SITAGLIPTIN PHOSPHATE
     Dosage: 1 DF, QD
     Route: 048
     Dates: start: 20210804
  7. MONTELUKAST [Concomitant]
     Active Substance: MONTELUKAST SODIUM
     Dosage: 10 MG, QD
     Route: 048
     Dates: start: 20191023
  8. TIZANIDINE [Concomitant]
     Active Substance: TIZANIDINE
     Dosage: 3 MG, QD
     Route: 048
     Dates: start: 20220209

REACTIONS (3)
  - Pneumonia [Recovered/Resolved]
  - Cough [Unknown]
  - Insomnia [Unknown]

NARRATIVE: CASE EVENT DATE: 20231228
